FAERS Safety Report 7630469-0 (Version None)
Quarter: 2011Q3

REPORT INFORMATION
  Report Type: 
  Country: None (occurrence: None)
  Receive Date: 20110722
  Receipt Date: 20110707
  Transmission Date: 20111222
  Serious: Yes (Death)
  Sender: FDA-Public Use
  Company Number: US-PFIZER INC-2010000634

PATIENT
  Age: 60 Year
  Sex: Female

DRUGS (8)
  1. HALOPERIDOL [Suspect]
     Dosage: UNK
     Route: 048
     Dates: end: 20080101
  2. LISINOPRIL [Suspect]
     Dosage: UNK
     Route: 048
     Dates: end: 20080101
  3. LOSARTAN POTASSIUM [Suspect]
     Dosage: UNK
     Route: 048
     Dates: end: 20080101
  4. METFORMIN HCL [Suspect]
     Dosage: UNK
     Route: 048
     Dates: end: 20080101
  5. CLONAZEPAM [Suspect]
     Dosage: UNK
     Route: 048
     Dates: end: 20080101
  6. CALCIUM ACETATE [Suspect]
     Dosage: UNK
     Route: 048
     Dates: end: 20080101
  7. VALPROIC ACID [Suspect]
     Dosage: UNK
     Route: 048
     Dates: end: 20080101
  8. SIMVASTATIN [Suspect]
     Dosage: UNK
     Route: 048
     Dates: end: 20080101

REACTIONS (1)
  - COMPLETED SUICIDE [None]
